FAERS Safety Report 7199003-6 (Version None)
Quarter: 2010Q4

REPORT INFORMATION
  Report Type: 
  Country: None (occurrence: None)
  Receive Date: 20101228
  Receipt Date: 20081107
  Transmission Date: 20110411
  Serious: No
  Sender: FDA-Public Use
  Company Number: 2008BI026881

PATIENT
  Age: 45 Year
  Sex: Female

DRUGS (2)
  1. TYSABRI [Suspect]
     Indication: MULTIPLE SCLEROSIS
     Route: 042
     Dates: start: 20080218, end: 20081128
  2. TYSABRI [Suspect]
     Route: 042
     Dates: start: 20100330

REACTIONS (8)
  - ARTHRALGIA [None]
  - BALANCE DISORDER [None]
  - CYSTITIS [None]
  - FALL [None]
  - GAIT DISTURBANCE [None]
  - HYPOAESTHESIA [None]
  - PAIN IN EXTREMITY [None]
  - STRESS [None]
